FAERS Safety Report 23568141 (Version 3)
Quarter: 2024Q1

REPORT INFORMATION
  Report Type: Report from Study
  Country: GB (occurrence: GB)
  Receive Date: 20240226
  Receipt Date: 20240325
  Transmission Date: 20240410
  Serious: Yes (Death, Other)
  Sender: FDA-Public Use
  Company Number: GB-CELLTRION INC.-2024GB004422

PATIENT

DRUGS (10)
  1. BEVACIZUMAB [Suspect]
     Active Substance: BEVACIZUMAB
     Indication: Hepatocellular carcinoma
     Dosage: 1200 MG
     Route: 065
     Dates: start: 20230111
  2. ATEZOLIZUMAB [Suspect]
     Active Substance: ATEZOLIZUMAB
     Indication: Hepatocellular carcinoma
     Dosage: UNK
     Route: 041
     Dates: start: 20230111
  3. BUDESONIDE [Concomitant]
     Active Substance: BUDESONIDE
     Dosage: 200MCG+6MCG; TWICE A DAY
     Dates: start: 1993, end: 20230307
  4. CANDESARTAN [Concomitant]
     Active Substance: CANDESARTAN
     Dosage: YES; ONCE A DAY
     Dates: start: 20230705
  5. CARVEDILOL [Concomitant]
     Active Substance: CARVEDILOL
     Dosage: UNK, BID
     Dates: start: 20211124, end: 20230617
  6. OMEPRAZOLE [Concomitant]
     Active Substance: OMEPRAZOLE
     Dosage: UNK, QD
     Dates: start: 202204, end: 20240307
  7. ALBUTEROL [Concomitant]
     Active Substance: ALBUTEROL
     Dosage: 100MCG; ;
     Dates: start: 1979, end: 20240307
  8. FORMOTEROL [Concomitant]
     Active Substance: FORMOTEROL
     Dosage: UNK
     Dates: start: 1993
  9. RENAPRO [Concomitant]
  10. CALCIUM CARBONATE;MAGNESIUM CHLORIDE [Concomitant]

REACTIONS (3)
  - Death [Fatal]
  - Rash [Unknown]
  - Intentional product use issue [Unknown]

NARRATIVE: CASE EVENT DATE: 20230118
